FAERS Safety Report 4762985-3 (Version None)
Quarter: 2005Q3

REPORT INFORMATION
  Report Type: 
  Country: None (occurrence: None)
  Receive Date: 20050907
  Receipt Date: 20050830
  Transmission Date: 20060218
  Serious: Yes (Other)
  Sender: FDA-Public Use
  Company Number: IE-MERCK-0509GBR00006

PATIENT
  Age: 11 Year
  Sex: Male

DRUGS (2)
  1. SINGULAIR [Suspect]
     Indication: ASTHMA
     Route: 048
     Dates: start: 20050626, end: 20050717
  2. CETIRIZINE HYDROCHLORIDE [Concomitant]
     Route: 065

REACTIONS (3)
  - AGGRESSION [None]
  - EPISTAXIS [None]
  - NERVOUSNESS [None]
